FAERS Safety Report 7481764-X (Version None)
Quarter: 2011Q2

REPORT INFORMATION
  Report Type: 
  Country: None (occurrence: None)
  Receive Date: 20110516
  Receipt Date: 20110509
  Transmission Date: 20111010
  Serious: Yes (Other)
  Sender: FDA-Public Use
  Company Number: B0719228A

PATIENT
  Age: 7 Year
  Sex: Male

DRUGS (1)
  1. FLUTICASONE PROPIONATE [Suspect]
     Indication: ASTHMA
     Dosage: 100UG TWICE PER DAY
     Route: 055

REACTIONS (13)
  - ADRENAL SUPPRESSION [None]
  - NAUSEA [None]
  - SEDATION [None]
  - ADRENOCORTICAL INSUFFICIENCY ACUTE [None]
  - BLOOD CORTISOL DECREASED [None]
  - OVERDOSE [None]
  - ABDOMINAL PAIN [None]
  - BLOOD GLUCOSE DECREASED [None]
  - BLOOD CORTICOTROPHIN DECREASED [None]
  - FATIGUE [None]
  - ADRENAL INSUFFICIENCY [None]
  - GROWTH RETARDATION [None]
  - INCORRECT DRUG ADMINISTRATION DURATION [None]
